FAERS Safety Report 15698077 (Version 1)
Quarter: 2018Q4

REPORT INFORMATION
  Report Type: Spontaneous
  Country: IT (occurrence: IT)
  Receive Date: 20181207
  Receipt Date: 20181207
  Transmission Date: 20190205
  Serious: Yes (Hospitalization, Other)
  Sender: FDA-Public Use
  Company Number: IT-SUN PHARMACEUTICAL INDUSTRIES LTD-2018RR-192960

PATIENT
  Age: 54 Year
  Sex: Male
  Weight: 109 kg

DRUGS (25)
  1. DOXAZOSIN [Concomitant]
     Active Substance: DOXAZOSIN\DOXAZOSIN MESYLATE
     Dosage: UNK ()
     Route: 065
  2. SIROLIMUS. [Interacting]
     Active Substance: SIROLIMUS
     Indication: PRODUCT USED FOR UNKNOWN INDICATION
     Dosage: UNK ()
     Route: 065
  3. SIROLIMUS. [Interacting]
     Active Substance: SIROLIMUS
     Dosage: UNK ()
     Route: 065
  4. ATENOLOL. [Concomitant]
     Active Substance: ATENOLOL
     Dosage: UNK ()
     Route: 065
  5. OMEPRAZOLE. [Suspect]
     Active Substance: OMEPRAZOLE
     Indication: PRODUCT USED FOR UNKNOWN INDICATION
     Dosage: ()
     Route: 065
  6. OMEPRAZOLE. [Interacting]
     Active Substance: OMEPRAZOLE
     Dosage: UNK ()
     Route: 048
  7. WARFARIN SODIUM. [Suspect]
     Active Substance: WARFARIN SODIUM
     Indication: PRODUCT USED FOR UNKNOWN INDICATION
     Dosage: UNK ()
     Route: 065
  8. CYCLOSPORIN [Interacting]
     Active Substance: CYCLOSPORINE
     Indication: PRODUCT USED FOR UNKNOWN INDICATION
     Dosage: UNK ()
     Route: 065
  9. ATENOLOL. [Concomitant]
     Active Substance: ATENOLOL
     Indication: PRODUCT USED FOR UNKNOWN INDICATION
     Dosage: UNKNOWN DOSE ()
     Route: 065
  10. OMEPRAZOLE. [Interacting]
     Active Substance: OMEPRAZOLE
     Dosage: ()
     Route: 065
  11. SIMVASTATIN. [Interacting]
     Active Substance: SIMVASTATIN
     Dosage: ()
     Route: 065
  12. ATENOLOL. [Concomitant]
     Active Substance: ATENOLOL
     Dosage: ()
     Route: 065
  13. DOXAZOSIN [Concomitant]
     Active Substance: DOXAZOSIN\DOXAZOSIN MESYLATE
     Indication: PRODUCT USED FOR UNKNOWN INDICATION
     Dosage: UNK ()
     Route: 065
  14. SIMVASTATIN. [Suspect]
     Active Substance: SIMVASTATIN
     Indication: PRODUCT USED FOR UNKNOWN INDICATION
     Route: 065
  15. SIROLIMUS. [Interacting]
     Active Substance: SIROLIMUS
     Dosage: ()
     Route: 065
  16. TRIVALENT INACTIVATED INFLUENZA VIRUS VACCINE [Interacting]
     Active Substance: INFLUENZA VIRUS VACCINE TRIVALENT TYPE A+B
     Indication: IMMUNISATION
     Dosage: UNK ()
     Route: 065
  17. WARFARIN SODIUM. [Suspect]
     Active Substance: WARFARIN SODIUM
     Dosage: UNK ()
     Route: 065
  18. PREDNISOLONE. [Interacting]
     Active Substance: PREDNISOLONE
     Dosage: UNK ()
     Route: 065
  19. CYCLOSPORIN [Interacting]
     Active Substance: CYCLOSPORINE
     Dosage: UNK ()
     Route: 065
  20. CYCLOSPORIN [Interacting]
     Active Substance: CYCLOSPORINE
     Dosage: ()
     Route: 065
  21. SIMVASTATIN. [Interacting]
     Active Substance: SIMVASTATIN
     Indication: PRODUCT USED FOR UNKNOWN INDICATION
     Dosage: UNK ()
     Route: 065
  22. SIMVASTATIN. [Interacting]
     Active Substance: SIMVASTATIN
     Dosage: UNK ()
     Route: 065
  23. PREDNISOLONE. [Interacting]
     Active Substance: PREDNISOLONE
     Indication: PRODUCT USED FOR UNKNOWN INDICATION
     Dosage: UNK ()
     Route: 065
  24. PREDNISOLONE. [Interacting]
     Active Substance: PREDNISOLONE
     Dosage: ()
     Route: 065
  25. SIROLIMUS. [Interacting]
     Active Substance: SIROLIMUS
     Dosage: ()
     Route: 065

REACTIONS (6)
  - Rhabdomyolysis [Unknown]
  - Myalgia [Unknown]
  - Anuria [Unknown]
  - Drug interaction [Unknown]
  - Pharyngitis [Unknown]
  - Rhinitis [Unknown]
